FAERS Safety Report 5881397-2 (Version None)
Quarter: 2008Q3

REPORT INFORMATION
  Report Type: 
  Country: None (occurrence: None)
  Receive Date: 20080912
  Receipt Date: 20080627
  Transmission Date: 20090109
  Serious: No
  Sender: FDA-Public Use
  Company Number: US-ABBOTT-08P-163-0460058-00

PATIENT
  Sex: Female
  Weight: 113.5 kg

DRUGS (12)
  1. HUMIRA [Suspect]
     Indication: RHEUMATOID ARTHRITIS
     Route: 058
     Dates: start: 20080301, end: 20080501
  2. HUMIRA [Suspect]
     Route: 058
     Dates: start: 20080501
  3. METHADONE HCL [Concomitant]
     Indication: PAIN
     Route: 048
     Dates: start: 20071201
  4. GABAPENTIN [Concomitant]
     Indication: PAIN
     Route: 048
     Dates: start: 20070601
  5. OXYCODONE IMMEDIATE RELEASE [Concomitant]
     Indication: PAIN
     Dosage: 1 DOSAGE FORM, EVERY 6 HOURS AS NEEDED
     Route: 048
  6. FOLIC ACID [Concomitant]
     Indication: VITAMIN SUPPLEMENTATION
     Route: 048
     Dates: start: 20071201
  7. ESTRADIOL [Concomitant]
     Indication: HORMONE REPLACEMENT THERAPY
     Route: 048
     Dates: start: 20060801
  8. ESOMEPRAZOLE MAGNESIUM [Concomitant]
     Indication: DYSPEPSIA
     Dosage: 40 MG DAILY, IN THE MORNING
     Route: 048
     Dates: start: 20060101
  9. FAMOTIDINE [Concomitant]
     Indication: DYSPEPSIA
     Dosage: 2-3 TABLETS DAILY
     Route: 048
     Dates: start: 20060101
  10. PROPRANOLOL [Concomitant]
     Indication: HYPERTENSION
     Route: 048
     Dates: start: 20050101
  11. CLONAZEPAM [Concomitant]
     Indication: PANIC ATTACK
     Dosage: 0.5 MG, TWICE DAILY AS NEEDED IN AM AND PM
     Route: 048
     Dates: start: 20080401
  12. TIZANIDINE HYDROCHLORIDE [Concomitant]
     Indication: PAIN
     Route: 048
     Dates: start: 20060101

REACTIONS (3)
  - ACTIVITIES OF DAILY LIVING IMPAIRED [None]
  - BLOOD SODIUM DECREASED [None]
  - PAIN [None]
